FAERS Safety Report 18811745 (Version 1)
Quarter: 2021Q1

REPORT INFORMATION
  Report Type: Spontaneous
  Country: CN (occurrence: CN)
  Receive Date: 20210129
  Receipt Date: 20210129
  Transmission Date: 20210419
  Serious: Yes (Other)
  Sender: FDA-Public Use
  Company Number: CN-B.BRAUN MEDICAL INC.-2106056

PATIENT
  Age: 38 Year
  Sex: Female
  Weight: 50 kg

DRUGS (1)
  1. NUTRILIPID I.V. FAT EMULSION [Suspect]
     Active Substance: SOYBEAN OIL
     Indication: PARENTERAL NUTRITION
     Route: 041
     Dates: start: 20201210, end: 20201222

REACTIONS (1)
  - Platelet count decreased [Recovering/Resolving]
